FAERS Safety Report 8762337 (Version 1)
Quarter: 2012Q4

REPORT INFORMATION
  Report Type: 
  Country: SE (occurrence: SE)
  Receive Date: 20120830
  Receipt Date: 20120830
  Transmission Date: 20130627
  Serious: Yes (Other)
  Sender: FDA-Public Use
  Company Number: SE-PFIZER INC-2012205709

PATIENT
  Age: 14 Year
  Sex: Female

DRUGS (1)
  1. PROVERA [Suspect]
     Indication: MENSTRUAL DISORDER
     Dosage: 10 mg/24h, cyclic, 2 days on, 16 days off
     Dates: start: 201204, end: 20120805

REACTIONS (3)
  - Obsessive-compulsive disorder [Not Recovered/Not Resolved]
  - Anxiety [Not Recovered/Not Resolved]
  - Psychomotor hyperactivity [Not Recovered/Not Resolved]
